FAERS Safety Report 7996847 (Version 2)
Quarter: 2012Q4

REPORT INFORMATION
  Report Type: 
  Country: CA (occurrence: CA)
  Receive Date: 20110617
  Receipt Date: 20121109
  Transmission Date: 20130627
  Serious: Yes (Hospitalization, Other)
  Sender: FDA-Public Use
  Company Number: PHMT2007CA00906

PATIENT
  Sex: Female

DRUGS (5)
  1. SANDOSTATIN LAR [Suspect]
     Indication: CARCINOID TUMOUR
     Dosage: 30mg every 4 weeks
     Route: 030
     Dates: start: 20060206
  2. CODEINE SYRUP [Concomitant]
     Indication: COUGH
  3. GLUCOSAMINE SULFATE [Concomitant]
  4. IRON [Concomitant]
  5. DILANTIN//PHENYTOIN [Concomitant]
     Dosage: 300 mg, BID

REACTIONS (12)
  - Haemoptysis [Not Recovered/Not Resolved]
  - Syncope [Recovering/Resolving]
  - Malignant neoplasm progression [Unknown]
  - Cough [Unknown]
  - Metastasis [Unknown]
  - Wheezing [Unknown]
  - Dyspnoea [Unknown]
  - Influenza like illness [Recovering/Resolving]
  - Flushing [Unknown]
  - Palpitations [Unknown]
  - Injection site pain [Unknown]
  - Dizziness [Unknown]
